FAERS Safety Report 11064155 (Version 1)
Quarter: 2015Q2

REPORT INFORMATION
  Report Type: Spontaneous
  Country: US (occurrence: US)
  Receive Date: 20150424
  Receipt Date: 20150424
  Transmission Date: 20150821
  Serious: No
  Sender: FDA-Public Use
  Company Number: US-ALKERMES INC.-ALK-2015-004380

PATIENT

DRUGS (1)
  1. VIVITROL [Suspect]
     Active Substance: NALTREXONE
     Indication: DRUG DEPENDENCE
     Dosage: 380 MG, QMO
     Route: 030
     Dates: start: 20150225

REACTIONS (9)
  - Psychomotor hyperactivity [Unknown]
  - Insomnia [Unknown]
  - Pain [Unknown]
  - Feeling drunk [Recovered/Resolved]
  - Homicidal ideation [Recovered/Resolved]
  - Drug abuse [Unknown]
  - Alcohol use [Recovered/Resolved]
  - Suicidal ideation [Recovered/Resolved]
  - Diarrhoea [Unknown]

NARRATIVE: CASE EVENT DATE: 20150226
